FAERS Safety Report 7055136-6 (Version None)
Quarter: 2010Q4

REPORT INFORMATION
  Report Type: 
  Country: None (occurrence: None)
  Receive Date: 20101020
  Receipt Date: 20101020
  Transmission Date: 20110411
  Serious: Yes (Death, Hospitalization)
  Sender: FDA-Public Use
  Company Number: None

PATIENT
  Sex: Male
  Weight: 71.7 kg

DRUGS (3)
  1. CARBOPLATIN [Suspect]
     Dosage: 549 MG
     Dates: end: 20100930
  2. ERBITUX [Suspect]
     Dosage: 740 MG
     Dates: end: 20100930
  3. TAXOL [Suspect]
     Dosage: 370 MG
     Dates: end: 20100930

REACTIONS (5)
  - ASTHENIA [None]
  - DYSPNOEA [None]
  - DYSSTASIA [None]
  - FALL [None]
  - MUSCULAR WEAKNESS [None]
